FAERS Safety Report 20498807 (Version 1)
Quarter: 2022Q1

REPORT INFORMATION
  Report Type: Spontaneous
  Country: GB (occurrence: GB)
  Receive Date: 20220222
  Receipt Date: 20220222
  Transmission Date: 20220424
  Serious: Yes (Disabling)
  Sender: FDA-Public Use
  Company Number: GB-MHRA-TPP9236695C4675156YC1644491480377

PATIENT
  Age: 66 Year
  Sex: Female
  Weight: 65 kg

DRUGS (27)
  1. FLUCONAZOLE [Suspect]
     Active Substance: FLUCONAZOLE
     Indication: Product used for unknown indication
     Dosage: 150 MILLIGRAM
     Route: 065
     Dates: start: 20220107
  2. AMITRIPTYLINE HYDROCHLORIDE [Concomitant]
     Active Substance: AMITRIPTYLINE HYDROCHLORIDE
     Indication: Ill-defined disorder
     Dosage: UNK (TAKE ONE AT NIGHT)
     Route: 065
     Dates: start: 20200813
  3. ATORVASTATIN [Concomitant]
     Active Substance: ATORVASTATIN
     Indication: Ill-defined disorder
     Dosage: UNK (TAKE ONE AT NIGHT)
     Route: 065
     Dates: start: 20200813
  4. BENDROFLUMETHIAZIDE [Concomitant]
     Active Substance: BENDROFLUMETHIAZIDE
     Indication: Ill-defined disorder
     Dosage: UNK (ONE TO BE TAKEN EACH MORNING)
     Route: 065
     Dates: start: 20200813, end: 20211210
  5. BETAMETHASONE VALERATE [Concomitant]
     Active Substance: BETAMETHASONE VALERATE
     Indication: Ill-defined disorder
     Dosage: UNK (APPLY TWICE DAILY WHEN REQUIRED)
     Route: 065
     Dates: start: 20200813, end: 20211210
  6. CARBOCYSTEINE [Concomitant]
     Active Substance: CARBOCYSTEINE
     Indication: Ill-defined disorder
     Dosage: UNK (TAKE ONE TWICE A DAY)
     Route: 065
     Dates: start: 20200813
  7. CLOPIDOGREL [Concomitant]
     Active Substance: CLOPIDOGREL BISULFATE
     Indication: Ill-defined disorder
     Dosage: UNK (TAKE ONE ONCE DAILY)
     Route: 065
     Dates: start: 20211210
  8. CLOTRIMAZOLE [Concomitant]
     Active Substance: CLOTRIMAZOLE
     Indication: Ill-defined disorder
     Dosage: UNK (APPLY 2-3 TIMES/DAY)
     Route: 065
     Dates: start: 20220209
  9. COCODAMOL [Concomitant]
     Active Substance: ACETAMINOPHEN\CODEINE PHOSPHATE
     Indication: Ill-defined disorder
     Dosage: UNK (TAKE 1 OR 2 4 TIMES/DAY WHEN REQUIRED FOR PAIN ...)
     Route: 065
     Dates: start: 20220126, end: 20220207
  10. CODEINE PHOSPHATE [Concomitant]
     Active Substance: CODEINE PHOSPHATE
     Indication: Ill-defined disorder
     Dosage: UNK (TAKE ONE 4 TIMES/DAY)
     Route: 065
     Dates: start: 20211210, end: 20211210
  11. BUTYLSCOPOLAMINE BROMIDE [Concomitant]
     Active Substance: BUTYLSCOPOLAMINE BROMIDE
     Indication: Ill-defined disorder
     Dosage: UNK (TAKE ONE OR TWO WHEN NEEDED UPTO  4 TIMES/DAY)
     Route: 065
     Dates: start: 20220131
  12. LANSOPRAZOLE [Concomitant]
     Active Substance: LANSOPRAZOLE
     Indication: Ill-defined disorder
     Dosage: UNK (TAKE ONE CAPSULE DAILY)
     Route: 065
     Dates: start: 20211210
  13. POLYETHYLENE GLYCOL 3350\POTASSIUM CHLORIDE\SODIUM BICARBONATE\SODIUM [Concomitant]
     Active Substance: POLYETHYLENE GLYCOL 3350\POTASSIUM CHLORIDE\SODIUM BICARBONATE\SODIUM CHLORIDE
     Indication: Ill-defined disorder
     Dosage: UNK (TAKE TWO SACHETS TWICE A DAY WITH BREAKFAST AND...)
     Route: 065
     Dates: start: 20211210, end: 20211215
  14. LISINOPRIL [Concomitant]
     Active Substance: LISINOPRIL
     Indication: Ill-defined disorder
     Dosage: UNK (ONE TO BE TAKEN DAILY)
     Route: 065
     Dates: start: 20200813
  15. Metanium [Concomitant]
     Indication: Ill-defined disorder
     Dosage: UNK (APPLY ONCE A DAY)
     Route: 065
     Dates: start: 20211210
  16. Micralax [Concomitant]
     Indication: Ill-defined disorder
     Dosage: UNK (INSERT ONE EVERY 48 HOURS)
     Route: 065
     Dates: start: 20211210, end: 20211215
  17. MIRABEGRON [Concomitant]
     Active Substance: MIRABEGRON
     Indication: Ill-defined disorder
     Dosage: UNK (TAKE ONE DAILY)
     Route: 065
     Dates: start: 20200813, end: 20211210
  18. MIRTAZAPINE [Concomitant]
     Active Substance: MIRTAZAPINE
     Indication: Ill-defined disorder
     Dosage: UNK (TAKE ONE AT NIGHT)
     Route: 065
     Dates: start: 20211210
  19. MOMETASONE [Concomitant]
     Active Substance: MOMETASONE
     Indication: Ill-defined disorder
     Dosage: UNK (TWO SPRAYS DAILY)
     Route: 065
     Dates: start: 20210409, end: 20211210
  20. ACETAMINOPHEN [Concomitant]
     Active Substance: ACETAMINOPHEN
     Indication: Ill-defined disorder
     Dosage: UNK (TAKE ONE OR TWO 4 TIMES/DAY WHRN REQUIRED)
     Route: 065
     Dates: start: 20211021, end: 20211215
  21. PREGABALIN [Concomitant]
     Active Substance: PREGABALIN
     Indication: Ill-defined disorder
     Dosage: UNK (ONE CAPSULE TWICE A DAY)
     Route: 065
     Dates: start: 20211210
  22. FLUTICASONE FUROATE\VILANTEROL TRIFENATATE [Concomitant]
     Active Substance: FLUTICASONE FUROATE\VILANTEROL TRIFENATATE
     Indication: Ill-defined disorder
     Dosage: UNK (INHALE 1 DOSE DAILY)
     Route: 065
     Dates: start: 20210616
  23. ALBUTEROL [Concomitant]
     Active Substance: ALBUTEROL
     Indication: Ill-defined disorder
     Dosage: UNK (TWO PUFFS FOUR TIMES A DAY)
     Route: 065
     Dates: start: 20200813, end: 20211215
  24. SENNOSIDES [Concomitant]
     Active Substance: SENNOSIDES
     Indication: Ill-defined disorder
     Dosage: UNK (2X5ML SPOON AT NIGHT AS NEEDED)
     Route: 065
     Dates: start: 20211210, end: 20211215
  25. SODIUM CHLORIDE [Concomitant]
     Active Substance: SODIUM CHLORIDE
     Indication: Ill-defined disorder
     Dosage: UNK (INSTILL 50ML TO 100ML INTO THE BLADDER AS NEEDED)
     Route: 065
     Dates: start: 20211210, end: 20220107
  26. TAMOXIFEN [Concomitant]
     Active Substance: TAMOXIFEN
     Indication: Ill-defined disorder
     Dosage: UNK (TAKE ONE DAILY)
     Route: 065
     Dates: start: 20210615, end: 20220207
  27. TIOTROPIUM [Concomitant]
     Active Substance: TIOTROPIUM
     Indication: Ill-defined disorder
     Dosage: UNK (INHALE 1 DOSE ONCE DAILY)
     Route: 065
     Dates: start: 20200813, end: 20211210

REACTIONS (3)
  - Diarrhoea [Recovering/Resolving]
  - Abdominal discomfort [Unknown]
  - Abdominal pain upper [Unknown]

NARRATIVE: CASE EVENT DATE: 20220210
